FAERS Safety Report 13687836 (Version 2)
Quarter: 2017Q3

REPORT INFORMATION
  Report Type: Spontaneous
  Country: FR (occurrence: FR)
  Receive Date: 20170626
  Receipt Date: 20170818
  Transmission Date: 20171127
  Serious: Yes (Other)
  Sender: FDA-Public Use
  Company Number: FR-MYLANLABS-2017M1038193

PATIENT

DRUGS (3)
  1. ACICLOVIR [Suspect]
     Active Substance: ACYCLOVIR
     Indication: OPHTHALMIC HERPES ZOSTER
     Dosage: 3.5 ML, TID
     Route: 048
     Dates: start: 20170523, end: 20170524
  2. ZOVIRAX [Concomitant]
     Active Substance: ACYCLOVIR
     Indication: PRODUCT USED FOR UNKNOWN INDICATION
     Dosage: UNK
     Dates: start: 20170523, end: 20170530
  3. ACICLOVIR [Suspect]
     Active Substance: ACYCLOVIR
     Indication: HERPES ZOSTER
     Dosage: UNK
     Route: 042

REACTIONS (5)
  - Drug ineffective [Unknown]
  - Blister [Recovered/Resolved]
  - Prescribed underdose [Unknown]
  - Vision blurred [Recovered/Resolved]
  - Iridocyclitis [Recovered/Resolved]

NARRATIVE: CASE EVENT DATE: 20170524
